FAERS Safety Report 23785183 (Version 3)
Quarter: 2024Q2

REPORT INFORMATION
  Report Type: Spontaneous
  Country: US (occurrence: US)
  Receive Date: 20240425
  Receipt Date: 20240523
  Transmission Date: 20240715
  Serious: Yes (Other)
  Sender: FDA-Public Use
  Company Number: US-Blueprint Medicines Corporation-3224

PATIENT
  Age: 83 Year
  Sex: Female

DRUGS (2)
  1. AYVAKIT [Suspect]
     Active Substance: AVAPRITINIB
     Indication: Systemic mastocytosis
     Route: 048
     Dates: start: 20240406
  2. AYVAKIT [Suspect]
     Active Substance: AVAPRITINIB
     Indication: Indolent systemic mastocytosis
     Route: 048
     Dates: start: 20240406

REACTIONS (8)
  - Atrial fibrillation [Not Recovered/Not Resolved]
  - Skin odour abnormal [Unknown]
  - Joint stiffness [Unknown]
  - Dizziness [Unknown]
  - Brain fog [Unknown]
  - Joint swelling [Unknown]
  - Periorbital swelling [Unknown]
  - Rash [Recovering/Resolving]

NARRATIVE: CASE EVENT DATE: 20240412
